FAERS Safety Report 5285673-6 (Version None)
Quarter: 2007Q1

REPORT INFORMATION
  Report Type: 
  Country: None (occurrence: None)
  Receive Date: 20070126
  Receipt Date: 20061220
  Transmission Date: 20070707
  Serious: No
  Sender: FDA-Public Use
  Company Number: 012751

PATIENT
  Age: 23 Year
  Sex: Female

DRUGS (1)
  1. PRIALT [Suspect]
     Indication: NEUROFIBROMATOSIS
     Dosage: ONCE/HOUR, INTRATHECAL
     Route: 037

REACTIONS (1)
  - INTRACRANIAL HYPOTENSION [None]
